FAERS Safety Report 19017893 (Version 1)
Quarter: 2021Q1

REPORT INFORMATION
  Report Type: Spontaneous
  Country: US (occurrence: US)
  Receive Date: 20210316
  Receipt Date: 20210316
  Transmission Date: 20210420
  Serious: Yes (Death)
  Sender: FDA-Public Use
  Company Number: None

PATIENT
  Age: 93 Year
  Sex: Female

DRUGS (8)
  1. ESBRIET [Suspect]
     Active Substance: PIRFENIDONE
     Indication: IDIOPATHIC PULMONARY FIBROSIS
     Route: 048
     Dates: start: 20151118, end: 202102
  2. LASIX [Suspect]
     Active Substance: FUROSEMIDE
  3. MELOXICAM. [Suspect]
     Active Substance: MELOXICAM
  4. ZOCOR [Suspect]
     Active Substance: SIMVASTATIN
  5. PLETAL [Suspect]
     Active Substance: CILOSTAZOL
  6. GLYBURIDE. [Suspect]
     Active Substance: GLYBURIDE
  7. FLEXERIL [Suspect]
     Active Substance: CYCLOBENZAPRINE HYDROCHLORIDE
  8. PREDNISONE. [Suspect]
     Active Substance: PREDNISONE

REACTIONS (1)
  - Death [None]

NARRATIVE: CASE EVENT DATE: 202102
